FAERS Safety Report 24971169 (Version 2)
Quarter: 2025Q3

REPORT INFORMATION
  Report Type: Spontaneous
  Country: EU (occurrence: EU)
  Receive Date: 20250214
  Receipt Date: 20250813
  Transmission Date: 20251020
  Serious: Yes (Hospitalization, Other)
  Sender: NORDIC PHARMA
  Company Number: EU-PFIZER INC-202500010634

PATIENT
  Age: 36 Year
  Sex: Female
  Weight: 134 kg

DRUGS (7)
  1. METHOTREXATE SODIUM [Suspect]
     Active Substance: METHOTREXATE SODIUM
     Indication: Optic neuritis
     Dosage: 10 MG, WEEKLY
     Route: 058
     Dates: start: 202211, end: 202301
  2. SUMATRIPTAN [Concomitant]
     Active Substance: SUMATRIPTAN
  3. PIROXICAM [Concomitant]
     Active Substance: PIROXICAM
     Dosage: 1 DF, 2X/DAY
  4. BISOPROLOL [Concomitant]
     Active Substance: BISOPROLOL
     Dosage: 0.5 DF, 1X/DAY
  5. FOLIC ACID [Concomitant]
     Active Substance: FOLIC ACID
     Dosage: 5 MG, 1X/DAY
  6. ALBUTEROL [Concomitant]
     Active Substance: ALBUTEROL
     Route: 055
  7. METHOTREXATE SODIUM [Concomitant]
     Active Substance: METHOTREXATE SODIUM
     Indication: Optic neuritis
     Route: 065
     Dates: start: 202211, end: 202301

REACTIONS (3)
  - Blood creatine phosphokinase MB increased [Unknown]
  - Product use in unapproved indication [Unknown]
  - Pneumonia [Unknown]

NARRATIVE: CASE EVENT DATE: 20221101
